FAERS Safety Report 8417512-6 (Version None)
Quarter: 2012Q2

REPORT INFORMATION
  Report Type: 
  Country: None (occurrence: None)
  Receive Date: 20120606
  Receipt Date: 20120529
  Transmission Date: 20120825
  Serious: Yes (Hospitalization)
  Sender: FDA-Public Use
  Company Number: US-JNJFOC-20120502174

PATIENT
  Sex: Male
  Weight: 35 kg

DRUGS (10)
  1. CYPROHEPTADINE HCL [Concomitant]
  2. HYDROCORTISONE [Concomitant]
  3. PULMOZYME [Concomitant]
  4. REMICADE [Suspect]
     Indication: COLITIS ULCERATIVE
     Route: 042
     Dates: start: 20111230
  5. MESALAMINE [Concomitant]
  6. PREDNISONE TAB [Concomitant]
  7. ALBUTEROL [Concomitant]
  8. PROAIR HFA [Concomitant]
  9. ADVAIR DISKUS 100/50 [Concomitant]
  10. ANTIBIOTICS [Concomitant]

REACTIONS (1)
  - INFECTIVE PULMONARY EXACERBATION OF CYSTIC FIBROSIS [None]
